FAERS Safety Report 15895788 (Version 6)
Quarter: 2019Q3

REPORT INFORMATION
  Report Type: Spontaneous
  Country: JP (occurrence: JP)
  Receive Date: 20190131
  Receipt Date: 20190828
  Transmission Date: 20191004
  Serious: Yes (Hospitalization, Other)
  Sender: FDA-Public Use
  Company Number: JP-ASTRAZENECA-2019SE16152

PATIENT
  Age: 27831 Day
  Sex: Male
  Weight: 46 kg

DRUGS (13)
  1. METHADERM [Concomitant]
     Active Substance: DEXAMETHASONE DIPROPIONATE
     Indication: RASH
     Dosage: OPTIMAL DOSE, AS REQUIRED
     Route: 062
  2. MUCOSTA [Concomitant]
     Active Substance: REBAMIPIDE
     Indication: DRY EYE
     Route: 047
  3. SANTESON [Concomitant]
     Indication: RASH
     Dosage: OPTIMAL DOSE, THREE OR FOUR TIMES/DAY
     Route: 062
  4. TAMSULOSIN HYDROCHLORIDE. [Concomitant]
     Active Substance: TAMSULOSIN HYDROCHLORIDE
     Indication: BENIGN PROSTATIC HYPERPLASIA
     Route: 048
  5. BRINZOLAMIDE [Concomitant]
     Active Substance: BRINZOLAMIDE
     Indication: GLAUCOMA
     Dosage: OPTIMAL DOSE
     Route: 047
  6. WARFARIN [Suspect]
     Active Substance: WARFARIN
     Indication: ATRIAL FIBRILLATION
     Route: 048
     Dates: end: 20190124
  7. TAGRISSO [Suspect]
     Active Substance: OSIMERTINIB
     Indication: NON-SMALL CELL LUNG CANCER
     Route: 048
     Dates: start: 20190430, end: 20190611
  8. WARFARIN [Suspect]
     Active Substance: WARFARIN
     Indication: ATRIAL FIBRILLATION
     Route: 048
     Dates: end: 20190124
  9. ANFLAVATE [Concomitant]
     Active Substance: BETAMETHASONE BUTYRATE PROPIONATE
     Indication: RASH
     Dosage: OPTIMAL DOSE, AS REQUIRED
     Route: 062
  10. LOCOID [Concomitant]
     Active Substance: HYDROCORTISONE BUTYRATE
     Indication: RASH
     Dosage: OPTIMAL DOSE, AS REQUIRED
     Route: 062
  11. TAGRISSO [Suspect]
     Active Substance: OSIMERTINIB
     Indication: NON-SMALL CELL LUNG CANCER
     Route: 048
     Dates: start: 20181213, end: 20190116
  12. HIRUDOID [Concomitant]
     Active Substance: GLYCOSAMINOGLYCANS
     Indication: RASH
     Dosage: OPTIMAL DOSE, AS REQUIRED
     Route: 062
  13. TAPROS MINI [Concomitant]
     Indication: GLAUCOMA
     Dosage: OPTIMAL DOSE
     Route: 047

REACTIONS (6)
  - Metastases to lung [Unknown]
  - Metastases to liver [Unknown]
  - Pulmonary alveolar haemorrhage [Recovered/Resolved]
  - Infection [Unknown]
  - Pneumocystis jirovecii pneumonia [Unknown]
  - Non-small cell lung cancer recurrent [Unknown]

NARRATIVE: CASE EVENT DATE: 20190116
